FAERS Safety Report 7417852-3 (Version None)
Quarter: 2011Q2

REPORT INFORMATION
  Report Type: 
  Country: None (occurrence: None)
  Receive Date: 20110415
  Receipt Date: 20110408
  Transmission Date: 20111010
  Serious: Yes (Other)
  Sender: FDA-Public Use
  Company Number: SE-PFIZER INC-2011077646

PATIENT
  Age: 59 Year
  Sex: Male

DRUGS (1)
  1. DALACIN [Suspect]
     Indication: INFECTION
     Dosage: UNK
     Dates: end: 20090506

REACTIONS (1)
  - LIVER INJURY [None]
